FAERS Safety Report 4289699-0 (Version None)
Quarter: 2004Q1

REPORT INFORMATION
  Report Type: 
  Country: None (occurrence: None)
  Receive Date: 20040123
  Receipt Date: 20031107
  Transmission Date: 20041129
  Serious: Yes (Other)
  Sender: FDA-Public Use
  Company Number: LOV-US-03-00159

PATIENT
  Age: 72 Year
  Sex: Female
  Weight: 48.9885 kg

DRUGS (5)
  1. ALTOCOR [Suspect]
     Indication: HYPERCHOLESTEROLAEMIA
     Dosage: 60 MG PO
     Route: 048
     Dates: start: 20030930, end: 20031104
  2. TIMOPTIC (TIMOLOL) [Concomitant]
  3. XALATAN [Concomitant]
  4. ZESTRIL [Concomitant]
  5. LASIX (FURSOEMIDE) 20 MG [Concomitant]

REACTIONS (2)
  - LIVER FUNCTION TEST ABNORMAL [None]
  - RHABDOMYOLYSIS [None]
